FAERS Safety Report 4597389-X (Version None)
Quarter: 2005Q1

REPORT INFORMATION
  Report Type: 
  Country: None (occurrence: None)
  Receive Date: 20050303
  Receipt Date: 20041130
  Transmission Date: 20050727
  Serious: Yes (Hospitalization)
  Sender: FDA-Public Use
  Company Number: US-GLAXOSMITHKLINE-A0535546A

PATIENT
  Age: 72 Year
  Sex: Male
  Weight: 79 kg

DRUGS (11)
  1. REQUIP [Suspect]
     Indication: PARKINSON'S DISEASE
     Route: 048
  2. AMBIEN [Suspect]
     Indication: SLEEP DISORDER
     Dosage: 1TAB SINGLE DOSE
     Route: 048
     Dates: start: 20041129, end: 20041129
  3. PERCOCET [Suspect]
     Indication: PAIN
     Route: 048
     Dates: start: 20041128, end: 20041129
  4. COUMADIN [Concomitant]
  5. SINEMET [Concomitant]
  6. ELDEPRYL [Concomitant]
  7. VITAMIN E [Concomitant]
  8. INSULIN [Concomitant]
  9. IRON [Concomitant]
  10. ASPIRIN [Concomitant]
  11. GLYBURIDE [Concomitant]

REACTIONS (1)
  - HALLUCINATION [None]
